FAERS Safety Report 5998705-4 (Version None)
Quarter: 2008Q4

REPORT INFORMATION
  Report Type: 
  Country: None (occurrence: None)
  Receive Date: 20081213
  Receipt Date: 20080718
  Transmission Date: 20090506
  Serious: No
  Sender: FDA-Public Use
  Company Number: US-AMGEN-KDL294850

PATIENT
  Sex: Male
  Weight: 68.1 kg

DRUGS (7)
  1. ENBREL [Suspect]
     Indication: RHEUMATOID ARTHRITIS
     Route: 058
     Dates: start: 20080314
  2. METHOTREXATE [Concomitant]
     Route: 048
  3. PREDNISONE TAB [Concomitant]
  4. SIMVASTATIN [Concomitant]
     Route: 048
  5. METOPROLOL [Concomitant]
  6. PLAVIX [Concomitant]
  7. PRILOSEC [Concomitant]

REACTIONS (2)
  - BREAST TENDERNESS [None]
  - GYNAECOMASTIA [None]
